FAERS Safety Report 7506812-X (Version None)
Quarter: 2011Q2

REPORT INFORMATION
  Report Type: 
  Country: None (occurrence: None)
  Receive Date: 20110526
  Receipt Date: 20110516
  Transmission Date: 20111010
  Serious: Yes (Death, Hospitalization)
  Sender: FDA-Public Use
  Company Number: A0927615A

PATIENT
  Age: 26 Year
  Sex: Female

DRUGS (2)
  1. PREDNISONE [Concomitant]
  2. LAMICTAL [Suspect]
     Dosage: 100MG PER DAY
     Route: 048
     Dates: start: 20090101, end: 20090601

REACTIONS (3)
  - SUDDEN UNEXPLAINED DEATH IN EPILEPSY [None]
  - HAEMOLYTIC ANAEMIA [None]
  - HAEMOGLOBIN DECREASED [None]
